FAERS Safety Report 16971939 (Version 2)
Quarter: 2019Q4

REPORT INFORMATION
  Report Type: Spontaneous
  Country: US (occurrence: US)
  Receive Date: 20191029
  Receipt Date: 20191111
  Transmission Date: 20200122
  Serious: No
  Sender: FDA-Public Use
  Company Number: US-TEVA-2019-US-1127506

PATIENT
  Sex: Male

DRUGS (2)
  1. MODAFINIL. [Suspect]
     Active Substance: MODAFINIL
     Indication: FATIGUE
     Dosage: 400 MILLIGRAM DAILY; STARTED TAKING 400 MG OF MODAFINIL WHEN HE FIRST WOKE UP AND THEN ANOTHER 200 M
     Route: 065
  2. MODAFINIL. [Suspect]
     Active Substance: MODAFINIL
     Indication: NARCOLEPSY
     Dosage: 600 MILLIGRAM DAILY; STARTED TAKING 400 MG OF MODAFINIL WHEN HE FIRST WOKE UP AND THEN ANOTHER 200 M
     Route: 065

REACTIONS (4)
  - Product use in unapproved indication [Unknown]
  - Intentional product use issue [Unknown]
  - Somnolence [Unknown]
  - Extra dose administered [Unknown]
